FAERS Safety Report 18944157 (Version 2)
Quarter: 2021Q2

REPORT INFORMATION
  Report Type: Spontaneous
  Country: JP (occurrence: JP)
  Receive Date: 20210226
  Receipt Date: 20210423
  Transmission Date: 20210717
  Serious: Yes (Hospitalization)
  Sender: FDA-Public Use
  Company Number: NVSJ2021JP002954

PATIENT
  Age: 56 Year
  Sex: Male
  Weight: 73.5 kg

DRUGS (17)
  1. PREDNISOLONE. [Concomitant]
     Active Substance: PREDNISOLONE
     Indication: INTERSTITIAL LUNG DISEASE
     Dosage: 2 MG
     Route: 048
  2. LANTUS XR [Concomitant]
     Active Substance: INSULIN GLARGINE
     Indication: DIABETES MELLITUS
     Dosage: 22 UNITS/DAY
     Route: 058
  3. COSENTYX [Suspect]
     Active Substance: SECUKINUMAB
     Indication: PSORIATIC ARTHROPATHY
     Dosage: 300 MG
     Route: 058
     Dates: start: 20170529
  4. NEXIUM [Concomitant]
     Active Substance: ESOMEPRAZOLE MAGNESIUM
     Indication: PROPHYLAXIS
     Dosage: 20 MG
     Route: 048
  5. NU?LOTAN [Concomitant]
     Active Substance: LOSARTAN POTASSIUM
     Indication: HYPERTENSION
     Dosage: 50 MG
     Route: 048
  6. LIMAPROST ALFADEX [Concomitant]
     Active Substance: LIMAPROST
     Indication: PSORIATIC ARTHROPATHY
     Dosage: 15 UG
     Route: 048
  7. VICTOZA [Concomitant]
     Active Substance: LIRAGLUTIDE
     Indication: DIABETES MELLITUS
     Dosage: 0.9 MG
     Route: 058
  8. KREMEZIN [Concomitant]
     Active Substance: ACTIVATED CHARCOAL
     Indication: CHRONIC KIDNEY DISEASE
     Dosage: 6000 MG
     Route: 048
  9. CADUET [Concomitant]
     Active Substance: AMLODIPINE BESYLATE\ATORVASTATIN CALCIUM
     Indication: HYPERTENSION
     Dosage: 1 DF
     Route: 048
  10. APLEWAY [Concomitant]
     Active Substance: TOFOGLIFLOZIN
     Indication: DIABETES MELLITUS
     Dosage: 20 MG
     Route: 048
  11. FOSAMAC [Concomitant]
     Active Substance: ALENDRONATE SODIUM
     Indication: PROPHYLAXIS
     Dosage: 35 MG/WEEK
     Route: 048
  12. TARACET [Concomitant]
     Indication: PSORIATIC ARTHROPATHY
     Dosage: 4 DF
     Route: 048
  13. TRICHLORMETHIAZIDE [Concomitant]
     Active Substance: TRICHLORMETHIAZIDE
     Indication: HYPERTENSION
     Dosage: 2 MG
     Route: 048
  14. LOTRIGA [Concomitant]
     Active Substance: OMEGA-3-ACID ETHYL ESTERS
     Indication: HYPERLIPIDAEMIA
     Dosage: 4 G
     Route: 048
  15. HUMALOG [Concomitant]
     Active Substance: INSULIN LISPRO
     Indication: DIABETES MELLITUS
     Dosage: 12 UNITS/DAY
     Route: 058
  16. ALLOPURINOL. [Concomitant]
     Active Substance: ALLOPURINOL
     Indication: HYPERURICAEMIA
     Dosage: 200 MG
     Route: 048
  17. PREGABALIN. [Concomitant]
     Active Substance: PREGABALIN
     Indication: PSORIATIC ARTHROPATHY
     Dosage: 100 MG
     Route: 048

REACTIONS (3)
  - Pancreatic neuroendocrine tumour [Not Recovered/Not Resolved]
  - Renal cyst [Unknown]
  - Cholelithiasis [Unknown]

NARRATIVE: CASE EVENT DATE: 202008
